FAERS Safety Report 9725385 (Version 1)
Quarter: 2013Q4

REPORT INFORMATION
  Report Type: Spontaneous
  Country: ES (occurrence: ES)
  Receive Date: 20131203
  Receipt Date: 20131203
  Transmission Date: 20140711
  Serious: Yes (Hospitalization, Other)
  Sender: FDA-Public Use
  Company Number: ES-009507513-1311ESP012174

PATIENT
  Age: 34 Year
  Sex: Male

DRUGS (1)
  1. CANCIDAS [Suspect]
     Indication: FEBRILE NEUTROPENIA
     Dosage: UNK, DAILY
     Route: 042
     Dates: start: 20131111, end: 20131113

REACTIONS (4)
  - Renal failure [Recovering/Resolving]
  - Hepatic failure [Recovering/Resolving]
  - Respiratory disorder [Recovering/Resolving]
  - Coagulation test abnormal [Recovering/Resolving]
